FAERS Safety Report 20081214 (Version 1)
Quarter: 2021Q4

REPORT INFORMATION
  Report Type: Spontaneous
  Country: US (occurrence: None)
  Receive Date: 20211117
  Receipt Date: 20211117
  Transmission Date: 20220304
  Serious: Yes (Other)
  Sender: FDA-Public Use
  Company Number: None

PATIENT
  Age: 49 Year
  Sex: Male
  Weight: 95.25 kg

DRUGS (6)
  1. REPATHA [Suspect]
     Active Substance: EVOLOCUMAB
     Indication: Blood cholesterol increased
     Dosage: OTHER QUANTITY : 1 - 2 INJECTIONS;?OTHER FREQUENCY : TWICE A MONTH;?
     Dates: start: 20210401, end: 20211001
  2. PRILOSEC [Concomitant]
     Active Substance: OMEPRAZOLE MAGNESIUM
  3. NOVOLOG [Concomitant]
     Active Substance: INSULIN ASPART
  4. VISCEPA [Concomitant]
  5. TYLENOL [Concomitant]
     Active Substance: ACETAMINOPHEN
  6. ASPIRIN [Concomitant]
     Active Substance: ASPIRIN

REACTIONS (1)
  - Gastroenteritis [None]

NARRATIVE: CASE EVENT DATE: 20211001
